FAERS Safety Report 15455169 (Version 1)
Quarter: 2018Q4

REPORT INFORMATION
  Report Type: Report from Study
  Country: AU (occurrence: AU)
  Receive Date: 20181002
  Receipt Date: 20181002
  Transmission Date: 20190204
  Serious: Yes (Other)
  Sender: FDA-Public Use
  Company Number: AU-HORIZON-ACT-0300-2018

PATIENT
  Age: 61 Year
  Sex: Male

DRUGS (1)
  1. IMUKIN [Suspect]
     Active Substance: INTERFERON GAMMA
     Indication: MALIGNANT MELANOMA STAGE IV
     Dosage: 40000 U/ML

REACTIONS (1)
  - Malignant neoplasm progression [Unknown]
